FAERS Safety Report 23115425 (Version 1)
Quarter: 2023Q4

REPORT INFORMATION
  Report Type: Spontaneous
  Country: US (occurrence: None)
  Receive Date: 20231026
  Receipt Date: 20231026
  Transmission Date: 20240110
  Serious: Yes (Life-Threatening, Hospitalization)
  Sender: FDA-Public Use
  Company Number: None

PATIENT
  Age: 83 Year
  Sex: Male

DRUGS (1)
  1. RIVAROXABAN [Suspect]
     Active Substance: RIVAROXABAN

REACTIONS (5)
  - Fall [None]
  - Loss of consciousness [None]
  - Subdural haematoma [None]
  - Cerebral mass effect [None]
  - Subarachnoid haemorrhage [None]

NARRATIVE: CASE EVENT DATE: 20230512
